FAERS Safety Report 4364524-8 (Version None)
Quarter: 2004Q2

REPORT INFORMATION
  Report Type: 
  Country: None (occurrence: None)
  Receive Date: 20040519
  Receipt Date: 20040510
  Transmission Date: 20050107
  Serious: Yes (Hospitalization)
  Sender: FDA-Public Use
  Company Number: 2003-BP-00953RO

PATIENT
  Age: 43 Year
  Sex: Female

DRUGS (3)
  1. PREDNISONE TAB [Suspect]
     Dosage: PO
     Route: 048
     Dates: start: 20020214
  2. BMS224818 (BMS 224818-INVESTIGATIONAL) [Suspect]
     Indication: RENAL TRANSPLANT
     Dosage: IV
     Route: 042
     Dates: start: 20020212, end: 20021127
  3. CELLCEPT [Suspect]
     Indication: RENAL TRANSPLANT
     Dates: start: 20020212

REACTIONS (2)
  - KIDNEY TRANSPLANT REJECTION [None]
  - URETERIC OBSTRUCTION [None]
